FAERS Safety Report 7298916-4 (Version None)
Quarter: 2011Q1

REPORT INFORMATION
  Report Type: 
  Country: None (occurrence: None)
  Receive Date: 20110217
  Receipt Date: 20110211
  Transmission Date: 20110831
  Serious: Yes (Death)
  Sender: FDA-Public Use
  Company Number: ID-ROCHE-759752

PATIENT
  Age: 4 Year
  Sex: Female
  Weight: 16 kg

DRUGS (4)
  1. PARACETAMOL [Concomitant]
     Dosage: 2 TEA SPOON. DRUG: PARACETAMOL /ACTEAMINOPHEN
     Dates: start: 20090305, end: 20090305
  2. OSELTAMIVIR [Suspect]
     Indication: AVIAN INFLUENZA
     Route: 065
     Dates: start: 20090305, end: 20090305
  3. CEFTRIAXONE SODIUM [Suspect]
     Route: 065
     Dates: start: 20090305, end: 20090305
  4. RANITIDINE HCL [Concomitant]
     Dates: start: 20090305, end: 20090305

REACTIONS (1)
  - ACUTE RESPIRATORY DISTRESS SYNDROME [None]
